FAERS Safety Report 12939326 (Version 1)
Quarter: 2016Q4

REPORT INFORMATION
  Report Type: Spontaneous
  Country: US (occurrence: US)
  Receive Date: 20161114
  Receipt Date: 20161114
  Transmission Date: 20170207
  Serious: No
  Sender: FDA-Public Use
  Company Number: None

PATIENT
  Age: 38 Year
  Sex: Male
  Weight: 78.75 kg

DRUGS (1)
  1. VYVANSE [Suspect]
     Active Substance: LISDEXAMFETAMINE DIMESYLATE
     Indication: ATTENTION DEFICIT/HYPERACTIVITY DISORDER
     Dosage: QUANTITY:30 CAPSULE(S); DAILY; ORAL ?
     Route: 048

REACTIONS (3)
  - Skin discolouration [None]
  - Nasopharyngitis [None]
  - Hypoaesthesia [None]

NARRATIVE: CASE EVENT DATE: 20161103
